FAERS Safety Report 24794651 (Version 1)
Quarter: 2024Q4

REPORT INFORMATION
  Report Type: Spontaneous
  Country: US (occurrence: US)
  Receive Date: 20241231
  Receipt Date: 20241231
  Transmission Date: 20250115
  Serious: Yes (Other)
  Sender: JOHNSON AND JOHNSON
  Company Number: US-JNJFOC-20241261165

PATIENT
  Age: 44 Year
  Sex: Female

DRUGS (6)
  1. OPSUMIT [Suspect]
     Active Substance: MACITENTAN
     Indication: Product used for unknown indication
     Route: 065
  2. REMODULIN [Suspect]
     Active Substance: TREPROSTINIL
     Indication: Pulmonary arterial hypertension
     Dosage: INFUSION RATE OF 36 UL/HR
     Route: 058
     Dates: start: 2024, end: 2024
  3. REMODULIN [Suspect]
     Active Substance: TREPROSTINIL
     Dosage: INFUSION RATE OF 36 UL/HR
     Route: 058
     Dates: start: 2024
  4. REMODULIN [Suspect]
     Active Substance: TREPROSTINIL
     Dosage: INFUSION RATE OF 36 UL/HR
     Route: 058
     Dates: start: 2024
  5. TREPROSTINIL SODIUM [Suspect]
     Active Substance: TREPROSTINIL SODIUM
     Indication: Pulmonary arterial hypertension
     Route: 058
     Dates: start: 202406
  6. TREPROSTINIL SODIUM [Suspect]
     Active Substance: TREPROSTINIL SODIUM
     Route: 058
     Dates: start: 2024

REACTIONS (10)
  - Epistaxis [Not Recovered/Not Resolved]
  - Dyspnoea at rest [Unknown]
  - Bendopnoea [Unknown]
  - General physical health deterioration [Unknown]
  - Cough [Not Recovered/Not Resolved]
  - Fine motor skill dysfunction [Unknown]
  - Fatigue [Unknown]
  - Dizziness [Unknown]
  - Peripheral swelling [Unknown]
  - Therapy interrupted [Unknown]
